FAERS Safety Report 9744523 (Version 1)
Quarter: 2013Q4

REPORT INFORMATION
  Report Type: Spontaneous
  Country: FR (occurrence: FR)
  Receive Date: 20131210
  Receipt Date: 20131210
  Transmission Date: 20140711
  Serious: Yes (Hospitalization, Disabling)
  Sender: FDA-Public Use
  Company Number: FR-BAXTER-2013BAX047948

PATIENT
  Age: 33 Year
  Sex: Female

DRUGS (14)
  1. RINGER LACTATE VIAFLO, SOLUTION POUR PERFUSION [Suspect]
     Indication: HAEMORRHAGE
     Route: 042
     Dates: start: 20131002, end: 20131002
  2. EXACYL [Suspect]
     Indication: PRODUCT USED FOR UNKNOWN INDICATION
     Route: 042
     Dates: start: 20131002, end: 20131002
  3. NALADOR [Suspect]
     Indication: PREMEDICATION
     Dosage: 2 AMPULS
     Route: 042
     Dates: start: 20131002, end: 20131002
  4. CLOTTAFACT [Suspect]
     Indication: PRODUCT USED FOR UNKNOWN INDICATION
     Dosage: 3 VIALS
     Route: 042
     Dates: start: 20131002, end: 20131002
  5. NOVOSEVEN [Suspect]
     Indication: UTERINE OPERATION
     Route: 042
     Dates: start: 20131002, end: 20131002
  6. VOLUVEN [Suspect]
     Indication: PRODUCT USED FOR UNKNOWN INDICATION
     Route: 042
     Dates: start: 20131002, end: 20131002
  7. CEFAZOLINE [Concomitant]
     Indication: PRODUCT USED FOR UNKNOWN INDICATION
     Route: 065
     Dates: start: 20131002
  8. AUGMENTIN [Concomitant]
     Indication: PRODUCT USED FOR UNKNOWN INDICATION
     Route: 065
     Dates: start: 20131002
  9. NEOSYNEPHRINE [Concomitant]
     Indication: PRODUCT USED FOR UNKNOWN INDICATION
     Route: 065
     Dates: start: 20131002
  10. AMLOR [Concomitant]
     Indication: BLOOD PRESSURE ABNORMAL
  11. BETAMETHASONE [Concomitant]
     Indication: PRODUCT USED FOR UNKNOWN INDICATION
     Route: 065
  12. ADALATE [Concomitant]
     Indication: BLOOD PRESSURE
  13. ADALATE [Concomitant]
     Dates: start: 20131001
  14. OXYTOCIN [Concomitant]
     Indication: LABOUR INDUCTION
     Dosage: 6 DOSES
     Dates: start: 20131002

REACTIONS (5)
  - Renal failure acute [Recovered/Resolved with Sequelae]
  - Renal cortical necrosis [Not Recovered/Not Resolved]
  - Thrombocytopenia [Recovered/Resolved]
  - Hepatocellular injury [Unknown]
  - Hypertension [Recovered/Resolved]
